FAERS Safety Report 8814671 (Version 2)
Quarter: 2012Q4

REPORT INFORMATION
  Report Type: Spontaneous
  Country: JP (occurrence: None)
  Receive Date: 20120926
  Receipt Date: 20121005
  Transmission Date: 20130627
  Serious: Yes (Other)
  Sender: FDA-Public Use
  Company Number: JP-2012-16327

PATIENT
  Age: 89 Year
  Sex: Male

DRUGS (1)
  1. SAMSCA [Suspect]
     Route: 048

REACTIONS (1)
  - Interstitial lung disease [None]
